FAERS Safety Report 4957359-6 (Version None)
Quarter: 2006Q1

REPORT INFORMATION
  Report Type: 
  Country: None (occurrence: None)
  Receive Date: 20060327
  Receipt Date: 20060314
  Transmission Date: 20060701
  Serious: Yes (Death)
  Sender: FDA-Public Use
  Company Number: 200610326BYL

PATIENT
  Age: 87 Year
  Sex: Male
  Weight: 58.6 kg

DRUGS (8)
  1. AVELOX [Suspect]
     Indication: BRONCHITIS ACUTE
     Dosage: 400 MG, QD, ORAL
     Route: 048
     Dates: start: 20060130, end: 20060201
  2. LYSOZYME HYDROCHLORID [Concomitant]
  3. ANTOBRON [Concomitant]
  4. NORVASC [Concomitant]
  5. MICARDIS [Concomitant]
  6. AMARYL [Concomitant]
  7. ALTAT [Concomitant]
  8. ASPIRIN [Concomitant]

REACTIONS (1)
  - SUBARACHNOID HAEMORRHAGE [None]
